FAERS Safety Report 10261996 (Version 1)
Quarter: 2014Q2

REPORT INFORMATION
  Report Type: Spontaneous
  Country: GB (occurrence: GB)
  Receive Date: 20140626
  Receipt Date: 20140626
  Transmission Date: 20141212
  Serious: Yes (Other)
  Sender: FDA-Public Use
  Company Number: GB-TEVA-489637ISR

PATIENT
  Sex: Male

DRUGS (1)
  1. NIFEDIPINE [Suspect]

REACTIONS (1)
  - Cardiac arrest [Unknown]
